FAERS Safety Report 14730319 (Version 1)
Quarter: 2018Q2

REPORT INFORMATION
  Report Type: Spontaneous
  Country: RU (occurrence: RU)
  Receive Date: 20180406
  Receipt Date: 20180406
  Transmission Date: 20180711
  Serious: Yes (Other)
  Sender: FDA-Public Use
  Company Number: RU-SA-2018SA091265

PATIENT
  Age: 9 Year
  Sex: Male

DRUGS (6)
  1. G-CSF [Concomitant]
     Active Substance: GRANULOCYTE COLONY-STIMULATING FACTOR NOS
     Route: 065
     Dates: start: 2016
  2. FLUDARABINE PHOSPHATE. [Suspect]
     Active Substance: FLUDARABINE PHOSPHATE
     Indication: BONE MARROW CONDITIONING REGIMEN
     Dosage: ADMINISTERED ON DAYS -3,-2 AND -1
     Route: 065
     Dates: start: 201606
  3. CYCLOPHOSPHAMIDE. [Suspect]
     Active Substance: CYCLOPHOSPHAMIDE
     Indication: ACUTE MYELOMONOCYTIC LEUKAEMIA
     Dosage: ADMINISTERED ON DAY -3
     Route: 065
     Dates: start: 201606, end: 201606
  4. CYCLOPHOSPHAMIDE. [Suspect]
     Active Substance: CYCLOPHOSPHAMIDE
     Indication: ACUTE MYELOMONOCYTIC LEUKAEMIA
     Route: 065
     Dates: start: 201605
  5. CYCLOPHOSPHAMIDE. [Suspect]
     Active Substance: CYCLOPHOSPHAMIDE
     Indication: BONE MARROW CONDITIONING REGIMEN
     Route: 065
     Dates: start: 201605
  6. CYCLOPHOSPHAMIDE. [Suspect]
     Active Substance: CYCLOPHOSPHAMIDE
     Indication: BONE MARROW CONDITIONING REGIMEN
     Dosage: ADMINISTERED ON DAY -3
     Route: 065
     Dates: start: 201606, end: 201606

REACTIONS (3)
  - Hyponatraemia [Unknown]
  - Seizure [Unknown]
  - Off label use [Unknown]
